FAERS Safety Report 17761474 (Version 1)
Quarter: 2020Q2

REPORT INFORMATION
  Report Type: Spontaneous
  Country: DE (occurrence: DE)
  Receive Date: 20200508
  Receipt Date: 20200508
  Transmission Date: 20200714
  Serious: Yes (Hospitalization, Other)
  Sender: FDA-Public Use
  Company Number: DE-TEVA-2020-DE-1231359

PATIENT
  Age: 90 Year
  Sex: Male

DRUGS (9)
  1. ELIQUIS [Concomitant]
     Active Substance: APIXABAN
     Dosage: DAILY DOSE: 5 MG MILLGRAM(S) EVERY DAY 2 SEPARATED DOSES
     Route: 048
  2. CARVEDILOL. [Concomitant]
     Active Substance: CARVEDILOL
     Dosage: 12.5 MILLIGRAM DAILY;
     Route: 048
  3. LAXANS TROPFEN [Concomitant]
     Dosage: IF NECESSARY
     Route: 048
  4. MACROGOL [Concomitant]
     Active Substance: POLYETHYLENE GLYCOLS
     Dosage: 1 DOSAGE FORMS DAILY;
     Route: 048
  5. DEKRISTOL [Concomitant]
     Active Substance: CHOLECALCIFEROL
     Dosage: 1000 IU (INTERNATIONAL UNIT) DAILY;
     Route: 048
  6. TORASEMID [Concomitant]
     Active Substance: TORSEMIDE
     Dosage: DAILY DOSE: 20 MG MILLGRAM(S) EVERY DAYS 2 SEPARATED DOSES
     Route: 048
  7. PANTOPRAZOL [Concomitant]
     Active Substance: PANTOPRAZOLE SODIUM
     Dosage: 40 MILLIGRAM DAILY;
     Route: 048
  8. NOVALGIN (METAMIZOLE SODIUM) [Suspect]
     Active Substance: METAMIZOLE SODIUM
     Indication: ANALGESIC THERAPY
     Dosage: DAILY DOSE: 1500 MG MILLGRAM(S) EVERY DAYS 3 SEPARATED DOSES
     Route: 048
     Dates: end: 20200311
  9. IBUPROFEN. [Suspect]
     Active Substance: IBUPROFEN
     Indication: ANALGESIC THERAPY
     Dosage: DAILY DOSE: 1800 MG MILLGRAM(S) EVERY DAYS 3 SEPARATED DOSES
     Route: 048
     Dates: end: 20200306

REACTIONS (2)
  - Stevens-Johnson syndrome [Recovering/Resolving]
  - SJS-TEN overlap [Recovering/Resolving]

NARRATIVE: CASE EVENT DATE: 20200306
